FAERS Safety Report 8340322-5 (Version None)
Quarter: 2012Q2

REPORT INFORMATION
  Report Type: 
  Country: None (occurrence: None)
  Receive Date: 20120507
  Receipt Date: 20120507
  Transmission Date: 20120825
  Serious: No
  Sender: FDA-Public Use
  Company Number: None

PATIENT
  Age: 42 Year
  Sex: Female
  Weight: 48.08 kg

DRUGS (2)
  1. AVELOX [Suspect]
     Indication: COUGH
     Dosage: |STRENGTH: 400MG|
     Dates: start: 20120319, end: 20120320
  2. AVELOX [Suspect]
     Indication: PYREXIA
     Dosage: |STRENGTH: 400MG|
     Dates: start: 20120319, end: 20120320

REACTIONS (5)
  - CYSTOID MACULAR OEDEMA [None]
  - IRIS TRANSILLUMINATION DEFECT [None]
  - UVEITIS [None]
  - NAUSEA [None]
  - PUPIL FIXED [None]
